FAERS Safety Report 8985173 (Version 2)
Quarter: 2013Q1

REPORT INFORMATION
  Report Type: Spontaneous
  Country: BR (occurrence: BR)
  Receive Date: 20121226
  Receipt Date: 20130122
  Transmission Date: 20140127
  Serious: Yes (Hospitalization, Other)
  Sender: FDA-Public Use
  Company Number: PHHY2012BR118967

PATIENT
  Sex: Female
  Weight: 78 kg

DRUGS (4)
  1. SANDOSTATIN LAR [Suspect]
     Indication: ACROMEGALY
     Dosage: UNK UKN, UNK
     Dates: start: 1999
  2. SANDOSTATIN LAR [Suspect]
     Dosage: 20 MG, EACH 28 DAYS
     Dates: end: 20121213
  3. SANDOSTATIN LAR [Suspect]
     Dosage: 30 MG, EACH 28 DAYS
  4. METFORMIN [Concomitant]
     Indication: DIABETES MELLITUS
     Dosage: 1 DF, A DAY
     Route: 048

REACTIONS (3)
  - Nodule [Unknown]
  - Body temperature [Unknown]
  - Pain in extremity [Unknown]
